FAERS Safety Report 20201097 (Version 1)
Quarter: 2021Q4

REPORT INFORMATION
  Report Type: Spontaneous
  Country: US (occurrence: US)
  Receive Date: 20211217
  Receipt Date: 20211217
  Transmission Date: 20220304
  Serious: No
  Sender: FDA-Public Use
  Company Number: US-PAIPHARMA-2021-US-020054

PATIENT
  Age: 83 Year
  Sex: Female
  Weight: 50.8 kg

DRUGS (3)
  1. CHLORHEXIDINE GLUCONATE [Suspect]
     Active Substance: CHLORHEXIDINE GLUCONATE
     Indication: Dental cleaning
     Dosage: TWICE DAILY
     Route: 048
     Dates: start: 20210824, end: 20210907
  2. AMLODIPINE [Concomitant]
     Active Substance: AMLODIPINE BESYLATE
  3. AMOXICILLIN [Concomitant]
     Active Substance: AMOXICILLIN
     Dates: start: 20210817

REACTIONS (3)
  - Dysgeusia [Unknown]
  - Weight decreased [Unknown]
  - Product use in unapproved indication [Recovered/Resolved]

NARRATIVE: CASE EVENT DATE: 20210825
